FAERS Safety Report 7742443-4 (Version None)
Quarter: 2011Q3

REPORT INFORMATION
  Report Type: 
  Country: None (occurrence: None)
  Receive Date: 20110907
  Receipt Date: 20110907
  Transmission Date: 20111222
  Serious: Yes (Other)
  Sender: FDA-Public Use
  Company Number: None

PATIENT
  Sex: Male
  Weight: 72.8 kg

DRUGS (1)
  1. LENALIDOMIDE [Suspect]
     Indication: HODGKIN'S DISEASE
     Dosage: LENALIDOMIDE 25 MG TO 5 MG DAY 1-28 ORAL
     Route: 048
     Dates: start: 20100720, end: 20110612

REACTIONS (5)
  - MYELODYSPLASTIC SYNDROME [None]
  - NEUTROPENIA [None]
  - THROMBOCYTOPENIA [None]
  - ANAEMIA [None]
  - TREATMENT RELATED SECONDARY MALIGNANCY [None]
